FAERS Safety Report 24114384 (Version 1)
Quarter: 2024Q3

REPORT INFORMATION
  Report Type: Spontaneous
  Country: GB (occurrence: GB)
  Receive Date: 20240720
  Receipt Date: 20240720
  Transmission Date: 20241016
  Serious: Yes (Hospitalization)
  Sender: RANBAXY
  Company Number: GB-MHRA-MED-202405061512172570-ZNVKL

PATIENT
  Age: 64 Year
  Sex: Female
  Weight: 67 kg

DRUGS (4)
  1. ATORVASTATIN [Suspect]
     Active Substance: ATORVASTATIN
     Indication: Blood cholesterol increased
     Dosage: 40MGS, UNK
     Route: 065
     Dates: end: 20230609
  2. ATORVASTATIN [Suspect]
     Active Substance: ATORVASTATIN
     Dosage: 40MGS, UNK
     Route: 065
     Dates: end: 20230909
  3. LEVOTHYROXINE [Concomitant]
     Active Substance: LEVOTHYROXINE\LEVOTHYROXINE SODIUM
     Indication: Adverse drug reaction
     Dosage: UNK
     Route: 065
  4. MIRABEGRON [Concomitant]
     Active Substance: MIRABEGRON
     Indication: Bladder irritation
     Dosage: UNK
     Route: 065

REACTIONS (1)
  - Necrotising myositis [Recovering/Resolving]

NARRATIVE: CASE EVENT DATE: 20230401
